FAERS Safety Report 25018430 (Version 1)
Quarter: 2025Q1

REPORT INFORMATION
  Report Type: Spontaneous
  Country: US (occurrence: US)
  Receive Date: 20250227
  Receipt Date: 20250227
  Transmission Date: 20250408
  Serious: No
  Sender: AVADEL CNS PHARMACEUTICALS, LLC
  Company Number: US-AVADEL CNS PHARMACEUTICALS, LLC-2024AVA02545

PATIENT
  Sex: Male

DRUGS (2)
  1. LUMRYZ [Suspect]
     Active Substance: SODIUM OXYBATE
  2. LUMRYZ [Suspect]
     Active Substance: SODIUM OXYBATE

REACTIONS (5)
  - Nasopharyngitis [Recovering/Resolving]
  - Nasal congestion [Recovering/Resolving]
  - Dizziness [Not Recovered/Not Resolved]
  - Product administration interrupted [Recovered/Resolved]
  - Intentional dose omission [Recovered/Resolved]
